FAERS Safety Report 4811537-5 (Version None)
Quarter: 2005Q4

REPORT INFORMATION
  Report Type: 
  Country: None (occurrence: None)
  Receive Date: 20051025
  Receipt Date: 20051011
  Transmission Date: 20060501
  Serious: Yes (Other)
  Sender: FDA-Public Use
  Company Number: SGB1-2005-00476

PATIENT
  Age: 61 Year
  Sex: Male
  Weight: 58.9 kg

DRUGS (29)
  1. LANTHANUM CARBONATE (LANTHANUM CARBONATE) TABLET CHEWABLE [Suspect]
     Indication: HYPERPHOSPHATAEMIA
     Dosage: SEE IMAGE
     Route: 048
     Dates: start: 20050322, end: 20050328
  2. LANTHANUM CARBONATE (LANTHANUM CARBONATE) TABLET CHEWABLE [Suspect]
     Indication: HYPERPHOSPHATAEMIA
     Dosage: SEE IMAGE
     Route: 048
     Dates: start: 20050329, end: 20050411
  3. LANTHANUM CARBONATE (LANTHANUM CARBONATE) TABLET CHEWABLE [Suspect]
     Indication: HYPERPHOSPHATAEMIA
     Dosage: SEE IMAGE
     Route: 048
     Dates: start: 20050412, end: 20050425
  4. LANTHANUM CARBONATE (LANTHANUM CARBONATE) TABLET CHEWABLE [Suspect]
     Indication: HYPERPHOSPHATAEMIA
     Dosage: SEE IMAGE
     Route: 048
     Dates: start: 20050426, end: 20050516
  5. LANTHANUM CARBONATE (LANTHANUM CARBONATE) TABLET CHEWABLE [Suspect]
     Indication: HYPERPHOSPHATAEMIA
     Dosage: SEE IMAGE
     Route: 048
     Dates: start: 20050517, end: 20050530
  6. LANTHANUM CARBONATE (LANTHANUM CARBONATE) TABLET CHEWABLE [Suspect]
     Indication: HYPERPHOSPHATAEMIA
     Dosage: SEE IMAGE
     Route: 048
     Dates: start: 20050531
  7. RISUMIC (AMEZINIUM METILSULFATE) [Suspect]
     Indication: BLOOD PRESSURE DECREASED
     Dosage: 10 MG, AS REQ'D, ORAL
     Route: 048
     Dates: start: 20050421
  8. TAGAMET [Concomitant]
  9. ASPIRIN [Concomitant]
  10. CARVEDILOL [Concomitant]
  11. LIDOCAINE HCL INJ [Concomitant]
  12. EPOGEN [Concomitant]
  13. SPONGEL (GELATIN) [Concomitant]
  14. KETOPROFEN [Concomitant]
  15. HAPSTAR (ENOXOLONE, DIPHENHYDRAMINE HYDROCHLORIDE, METHYL SALICYLATE, [Concomitant]
  16. BETAMETHASONE VALERATE (BETAMETHASONE VALERATE) [Concomitant]
  17. SENNA ALEXANDRINA (SENNA ALEXANDRINA) [Concomitant]
  18. KAYEXALATE [Concomitant]
  19. CARNACULIN (PANCREAS EXTRACT) [Concomitant]
  20. HEPARIN [Concomitant]
  21. BASEN (VOGLIBOSE) [Concomitant]
  22. KARY UNI (PIRENOXINE) [Concomitant]
  23. OXAROL (MAXACALCITOL) [Concomitant]
  24. SULPYRINE (METAMIZOLE SODIUM) [Concomitant]
  25. CAFFEINE AND SODIUM BENZOATE (CAFFEINE AND SODIUM BENZOATE) [Concomitant]
  26. ALLERGIN [Concomitant]
  27. MEDICON (DEXTROMETHORPHAN HYDROBROMIDE) [Concomitant]
  28. METHYLEPHEDRINE (METHYLEPHEDRINE) [Concomitant]
  29. ACETAMINOPHEN [Concomitant]

REACTIONS (7)
  - BLOOD PRESSURE DECREASED [None]
  - HEAD DISCOMFORT [None]
  - HEART RATE DECREASED [None]
  - HYPERHIDROSIS [None]
  - PALLOR [None]
  - TACHYARRHYTHMIA [None]
  - UNRESPONSIVE TO VERBAL STIMULI [None]
